FAERS Safety Report 20021549 (Version 2)
Quarter: 2023Q1

REPORT INFORMATION
  Report Type: Report from Study
  Country: US (occurrence: US)
  Receive Date: 20211101
  Receipt Date: 20230120
  Transmission Date: 20230417
  Serious: Yes (Other)
  Sender: FDA-Public Use
  Company Number: US-JAZZ-2021-US-014609

PATIENT
  Age: 52 Year
  Sex: Female

DRUGS (5)
  1. XYWAV [Suspect]
     Active Substance: CALCIUM OXYBATE\MAGNESIUM OXYBATE\POTASSIUM OXYBATE\SODIUM OXYBATE
     Indication: Narcolepsy
     Dosage: 4.5 GRAM, BID
     Route: 048
     Dates: start: 202103
  2. XYWAV [Suspect]
     Active Substance: CALCIUM OXYBATE\MAGNESIUM OXYBATE\POTASSIUM OXYBATE\SODIUM OXYBATE
     Indication: Cataplexy
  3. XYWAV [Suspect]
     Active Substance: CALCIUM OXYBATE\MAGNESIUM OXYBATE\POTASSIUM OXYBATE\SODIUM OXYBATE
     Indication: Somnolence
  4. SYNTHROID [Concomitant]
     Active Substance: LEVOTHYROXINE SODIUM
     Indication: Product used for unknown indication
     Dosage: QD
     Dates: start: 20130711
  5. ONDANSETRON [Concomitant]
     Active Substance: ONDANSETRON
     Indication: Product used for unknown indication
     Dosage: OTH
     Dates: start: 20170526

REACTIONS (20)
  - Lung disorder [Recovering/Resolving]
  - Asthma [Recovering/Resolving]
  - Hysterectomy [Unknown]
  - Diverticulitis [Not Recovered/Not Resolved]
  - Fall [Recovered/Resolved]
  - Wrist fracture [Unknown]
  - Rib fracture [Unknown]
  - Blood glucose increased [Unknown]
  - Condition aggravated [Unknown]
  - COVID-19 [Recovered/Resolved]
  - Irritable bowel syndrome [Unknown]
  - Osteoporosis postmenopausal [Not Recovered/Not Resolved]
  - Weight increased [Unknown]
  - Injury [Unknown]
  - Sinus disorder [Unknown]
  - Arthritis [Not Recovered/Not Resolved]
  - Joint dislocation [Unknown]
  - Ligament rupture [Unknown]
  - Joint dislocation [Unknown]
  - Eye contusion [Unknown]

NARRATIVE: CASE EVENT DATE: 20210601
